FAERS Safety Report 9393767 (Version 1)
Quarter: 2013Q3

REPORT INFORMATION
  Report Type: Spontaneous
  Country: US (occurrence: US)
  Receive Date: 20130710
  Receipt Date: 20130710
  Transmission Date: 20140515
  Serious: No
  Sender: FDA-Public Use
  Company Number: US-PFIZER INC-2013202164

PATIENT
  Age: 45 Year
  Sex: Female
  Weight: 74.83 kg

DRUGS (9)
  1. GEODON [Suspect]
     Indication: BIPOLAR DISORDER
     Dosage: UNK
     Dates: end: 2013
  2. LITHIUM ER [Concomitant]
     Dosage: UNK
  3. TOPAMAX [Concomitant]
     Dosage: UNK
  4. XANAX [Concomitant]
     Dosage: UNK
  5. CLONAZEPAM [Concomitant]
     Dosage: UNK
  6. SYNTHROID [Concomitant]
     Dosage: UNK
  7. VITAMIN D3 [Concomitant]
     Dosage: UNK
  8. LAMOTRIGINE [Concomitant]
     Dosage: UNK
  9. CALCIUM [Concomitant]
     Dosage: UNK

REACTIONS (8)
  - Extrapyramidal disorder [Unknown]
  - Drug withdrawal syndrome [Unknown]
  - Blood glucose decreased [Recovered/Resolved]
  - Abdominal discomfort [Unknown]
  - Head discomfort [Unknown]
  - Dizziness [Unknown]
  - Weight increased [Unknown]
  - Diarrhoea [Unknown]
